FAERS Safety Report 5584757-2 (Version None)
Quarter: 2008Q1

REPORT INFORMATION
  Report Type: 
  Country: None (occurrence: None)
  Receive Date: 20080103
  Receipt Date: 20071219
  Transmission Date: 20080703
  Serious: Yes (Other)
  Sender: FDA-Public Use
  Company Number: 106964

PATIENT
  Age: 73 Year
  Sex: Male

DRUGS (1)
  1. DAIVONEX (CALCIPOTRIOL) [Suspect]
     Indication: PSORIASIS
     Dosage: TOPICAL
     Route: 061

REACTIONS (2)
  - HYPERCALCAEMIA [None]
  - OVERDOSE [None]
